FAERS Safety Report 21842211 (Version 1)
Quarter: 2023Q1

REPORT INFORMATION
  Report Type: Spontaneous
  Country: DE (occurrence: DE)
  Receive Date: 20230110
  Receipt Date: 20230110
  Transmission Date: 20230418
  Serious: Yes (Other)
  Sender: FDA-Public Use
  Company Number: None

PATIENT
  Age: 66 Year
  Sex: Male

DRUGS (6)
  1. MYCOPHENOLATE MOFETIL [Suspect]
     Active Substance: MYCOPHENOLATE MOFETIL
     Indication: Sarcoidosis
     Dosage: UNK
     Route: 065
     Dates: start: 202101, end: 20210709
  2. MYCOPHENOLATE MOFETIL [Suspect]
     Active Substance: MYCOPHENOLATE MOFETIL
     Indication: Tubulointerstitial nephritis
     Dosage: 360 MILLIGRAM, BID
     Route: 065
     Dates: start: 2021
  3. AZATHIOPRINE [Suspect]
     Active Substance: AZATHIOPRINE
     Indication: Tubulointerstitial nephritis
     Dosage: UNK
     Route: 065
     Dates: start: 202010, end: 2020
  4. AZATHIOPRINE [Suspect]
     Active Substance: AZATHIOPRINE
     Indication: Sarcoidosis
  5. PREDNISOLONE [Concomitant]
     Active Substance: PREDNISOLONE
     Indication: Tubulointerstitial nephritis
     Dosage: 0.5 MILLIGRAM/KILOGRAM, UNKNOWN
     Route: 065
     Dates: start: 202010
  6. PREDNISOLONE [Concomitant]
     Active Substance: PREDNISOLONE
     Indication: Sarcoidosis
     Dosage: 15 MILLIGRAM, UNKNOWN
     Route: 065
     Dates: start: 2021

REACTIONS (3)
  - Seroconversion test negative [Recovered/Resolved]
  - Hepatic enzyme increased [Unknown]
  - Off label use [Unknown]

NARRATIVE: CASE EVENT DATE: 20200101
